FAERS Safety Report 5981595-3 (Version None)
Quarter: 2008Q4

REPORT INFORMATION
  Report Type: 
  Country: None (occurrence: None)
  Receive Date: 20081202
  Receipt Date: 20081117
  Transmission Date: 20090506
  Serious: Yes (Death, Life-Threatening, Hospitalization, Disabling, Other)
  Sender: FDA-Public Use
  Company Number: 2008-04331

PATIENT
  Age: 73 Year
  Sex: Male

DRUGS (3)
  1. VELCADE [Suspect]
     Indication: MULTIPLE MYELOMA
     Dosage: 1.3 MG/M2, IV BOLUS : 1 MG/M2, IV BOLUS
     Route: 040
     Dates: start: 20081027, end: 20081030
  2. VELCADE [Suspect]
     Indication: MULTIPLE MYELOMA
     Dosage: 1.3 MG/M2, IV BOLUS : 1 MG/M2, IV BOLUS
     Route: 040
     Dates: start: 20081006
  3. TANESPIMYCIN           (TANESPIMYCIN) [Suspect]
     Indication: MULTIPLE MYELOMA
     Dosage: 340 MG/M2, IV BOLUS : 275 MG/M2, IV BOLUS
     Route: 040
     Dates: start: 20081006

REACTIONS (8)
  - BACTERIAL SEPSIS [None]
  - CARDIAC ARREST [None]
  - CORONARY ARTERY DISEASE [None]
  - DIARRHOEA [None]
  - DIVERTICULITIS [None]
  - LEFT VENTRICULAR HYPERTROPHY [None]
  - MYOCARDIAL INFARCTION [None]
  - MYOCARDIAL ISCHAEMIA [None]
